FAERS Safety Report 13473862 (Version 1)
Quarter: 2017Q2

REPORT INFORMATION
  Report Type: Spontaneous
  Country: US (occurrence: US)
  Receive Date: 20170424
  Receipt Date: 20170424
  Transmission Date: 20170830
  Serious: Yes (Other)
  Sender: FDA-Public Use
  Company Number: US-ALKERMES INC.-ALK-2017-001427

PATIENT
  Age: 25 Year
  Sex: Male
  Weight: 77.98 kg

DRUGS (1)
  1. VIVITROL [Suspect]
     Active Substance: NALTREXONE
     Indication: DRUG USE DISORDER
     Dosage: 380 MG, QMO
     Route: 030
     Dates: start: 20170407

REACTIONS (5)
  - Injection site reaction [Unknown]
  - Product use issue [Unknown]
  - Injection site mass [Unknown]
  - Injection site induration [Unknown]
  - Product preparation error [Unknown]

NARRATIVE: CASE EVENT DATE: 20170407
